FAERS Safety Report 16503858 (Version 8)
Quarter: 2019Q4

REPORT INFORMATION
  Report Type: Spontaneous
  Country: US (occurrence: US)
  Receive Date: 20190701
  Receipt Date: 20191204
  Transmission Date: 20200122
  Serious: Yes (Other)
  Sender: FDA-Public Use
  Company Number: US-PFIZER INC-2019278839

PATIENT
  Age: 58 Year
  Sex: Female

DRUGS (1)
  1. SUTENT [Suspect]
     Active Substance: SUNITINIB MALATE
     Indication: RENAL CANCER
     Dosage: 50 MG, CYCLIC (DAILY FOR 28 DAYS ON + 14 DAYS OFF/ONCE DAILY ON A SCHEDULE OF A WEEKS ON TREATMENT )
     Route: 048
     Dates: start: 201906

REACTIONS (30)
  - Swelling of eyelid [Unknown]
  - Hypoaesthesia oral [Unknown]
  - Stomatitis [Not Recovered/Not Resolved]
  - White blood cell count decreased [Unknown]
  - Tongue disorder [Unknown]
  - Headache [Unknown]
  - Nasal discomfort [Recovered/Resolved]
  - Nausea [Unknown]
  - Pain in extremity [Unknown]
  - Micturition urgency [Unknown]
  - Peripheral swelling [Unknown]
  - Blister [Recovered/Resolved]
  - Oral mucosal blistering [Recovering/Resolving]
  - Taste disorder [Unknown]
  - Blister infected [Unknown]
  - Joint swelling [Unknown]
  - Flatulence [Unknown]
  - Arthralgia [Unknown]
  - Abdominal pain [Unknown]
  - Erythema [Unknown]
  - Blood pressure increased [Recovering/Resolving]
  - Abdominal abscess [Unknown]
  - Diarrhoea [Unknown]
  - Paraesthesia oral [Unknown]
  - Rash macular [Recovering/Resolving]
  - Dry skin [Recovering/Resolving]
  - Memory impairment [Not Recovered/Not Resolved]
  - Fatigue [Not Recovered/Not Resolved]
  - Fungal infection [Unknown]
  - Skin exfoliation [Recovering/Resolving]

NARRATIVE: CASE EVENT DATE: 2019
